FAERS Safety Report 17869199 (Version 2)
Quarter: 2021Q1

REPORT INFORMATION
  Report Type: Spontaneous
  Country: CA (occurrence: CA)
  Receive Date: 20200608
  Receipt Date: 20210213
  Transmission Date: 20210419
  Serious: Yes (Hospitalization)
  Sender: FDA-Public Use
  Company Number: CA-ROCHE-2612423

PATIENT
  Age: 58 Year
  Sex: Male

DRUGS (11)
  1. CLOBAZAM. [Concomitant]
     Active Substance: CLOBAZAM
  2. ACETYLSALICYLIC ACID [Concomitant]
     Active Substance: ASPIRIN
  3. ETOPOSIDE. [Suspect]
     Active Substance: ETOPOSIDE
     Indication: GLIOBLASTOMA
     Route: 065
  4. ASA [Concomitant]
     Active Substance: ASPIRIN
  5. FOSAMAX [Concomitant]
     Active Substance: ALENDRONATE SODIUM
  6. VITAMIN D [ERGOCALCIFEROL] [Concomitant]
     Active Substance: ERGOCALCIFEROL
  7. DECADRON [Concomitant]
     Active Substance: DEXAMETHASONE
  8. AVASTIN [Suspect]
     Active Substance: BEVACIZUMAB
     Indication: GLIOBLASTOMA
     Route: 042
  9. KEPPRA [Concomitant]
     Active Substance: LEVETIRACETAM
  10. NYSTATIN. [Concomitant]
     Active Substance: NYSTATIN
  11. CHOLECALCIFEROL [Concomitant]
     Active Substance: CHOLECALCIFEROL

REACTIONS (4)
  - Malignant neoplasm progression [Unknown]
  - Seizure [Unknown]
  - Nasopharyngitis [Unknown]
  - Product use in unapproved indication [Unknown]
